FAERS Safety Report 8234633-1 (Version None)
Quarter: 2012Q1

REPORT INFORMATION
  Report Type: 
  Country: None (occurrence: None)
  Receive Date: 20120326
  Receipt Date: 20120316
  Transmission Date: 20120608
  Serious: Yes (Hospitalization)
  Sender: FDA-Public Use
  Company Number: US-ELI_LILLY_AND_COMPANY-US201203004927

PATIENT
  Sex: Female
  Weight: 71.202 kg

DRUGS (7)
  1. METFORMIN HCL [Concomitant]
     Indication: TYPE 2 DIABETES MELLITUS
     Dosage: 1000 MG, BID
     Route: 048
  2. HYDROCHLOROTHIAZIDE [Concomitant]
     Dosage: 25 MG, QD
     Route: 048
     Dates: end: 20120308
  3. BYETTA [Suspect]
     Indication: TYPE 2 DIABETES MELLITUS
     Dosage: 5 UG, BID
     Route: 058
     Dates: start: 20110501, end: 20120308
  4. LEVOXYL [Concomitant]
     Dosage: 100 UG, QD
     Route: 048
  5. HUMALIN [Concomitant]
     Indication: TYPE 2 DIABETES MELLITUS
     Dosage: 1 DF, BID
     Route: 058
  6. ASPIRIN [Concomitant]
     Dosage: 81 MG, QD
     Route: 048
  7. POTASSIUM [Concomitant]
     Dosage: 1 DF, BID
     Route: 048

REACTIONS (5)
  - AMYLASE INCREASED [None]
  - LIPASE INCREASED [None]
  - ABDOMINAL PAIN LOWER [None]
  - ABDOMINAL PAIN [None]
  - ABDOMINAL PAIN UPPER [None]
